FAERS Safety Report 9312519 (Version 2)
Quarter: 2013Q2

REPORT INFORMATION
  Report Type: Spontaneous
  Country: US (occurrence: None)
  Receive Date: 20130520
  Receipt Date: 20130529
  Transmission Date: 20140414
  Serious: No
  Sender: FDA-Public Use
  Company Number: 1305ITA000245

PATIENT
  Age: 3 Year
  Sex: Female

DRUGS (1)
  1. CEDAX (CEFTIBUTEN) CAPSULE [Suspect]
     Indication: PHARYNGOTONSILLITIS
     Route: 048
     Dates: start: 20121113, end: 20121118

REACTIONS (3)
  - Pruritus [None]
  - Urticaria [None]
  - Pain in extremity [None]
